FAERS Safety Report 7828978-4 (Version None)
Quarter: 2011Q4

REPORT INFORMATION
  Report Type: 
  Country: None (occurrence: None)
  Receive Date: 20111020
  Receipt Date: 20100304
  Transmission Date: 20120403
  Serious: No
  Sender: FDA-Public Use
  Company Number: US-BAYER-201016321NA

PATIENT

DRUGS (1)
  1. CIPRO [Suspect]

REACTIONS (1)
  - PRODUCT RECONSTITUTION ISSUE [None]
